FAERS Safety Report 8699495 (Version 4)
Quarter: 2012Q4

REPORT INFORMATION
  Report Type: 
  Country: US (occurrence: US)
  Receive Date: 20120802
  Receipt Date: 20121101
  Transmission Date: 20130627
  Serious: Yes (Other)
  Sender: FDA-Public Use
  Company Number: US-ASTRAZENECA-2012SE51949

PATIENT
  Age: 85 Year
  Sex: Male
  Weight: 90.7 kg

DRUGS (2)
  1. SYMBICORT PMDI [Suspect]
     Indication: CHRONIC OBSTRUCTIVE PULMONARY DISEASE
     Dosage: 160/4.5, TWO TIMES A DAY
     Route: 055
  2. ARICEPT [Concomitant]

REACTIONS (2)
  - Blindness [Unknown]
  - Dementia Alzheimer^s type [Unknown]
